FAERS Safety Report 9869001 (Version 1)
Quarter: 2014Q1

REPORT INFORMATION
  Report Type: Report from Study
  Country: US (occurrence: US)
  Receive Date: 20140205
  Receipt Date: 20140205
  Transmission Date: 20141002
  Serious: Yes (Hospitalization)
  Sender: FDA-Public Use
  Company Number: US-ROCHE-1341781

PATIENT
  Sex: Male

DRUGS (9)
  1. LUCENTIS [Suspect]
     Indication: PRODUCT USED FOR UNKNOWN INDICATION
     Dosage: 0.25 OR 0.3 MG PER EYE (INJECTION, BOTH EYES (ONLY 1 EYE INJECTED AT A TIME))
     Route: 065
     Dates: end: 201305
  2. AMLODIPINE [Concomitant]
     Route: 048
  3. GLIPIZIDE [Concomitant]
     Dosage: 10MG IN THE AM, 5MG IN THE EVENING
     Route: 065
     Dates: end: 201401
  4. SIMVASTATIN [Concomitant]
     Dosage: AT NIGHT ONLY
     Route: 065
  5. FAMOTIDINE [Concomitant]
     Route: 065
  6. VITAMIN D3 [Concomitant]
     Route: 065
  7. ZEMPLAR [Concomitant]
     Dosage: MCT; M-W-F ONLY
     Route: 065
  8. SODIUM BICARBONATE [Concomitant]
     Route: 065
  9. INSULIN [Concomitant]
     Dosage: AT NIGHT
     Route: 065

REACTIONS (5)
  - Dizziness [Unknown]
  - Diarrhoea [Unknown]
  - Eye disorder [Unknown]
  - Feeling of despair [Unknown]
  - Drug ineffective [Unknown]
